FAERS Safety Report 8801905 (Version 4)
Quarter: 2013Q1

REPORT INFORMATION
  Report Type: Spontaneous
  Country: US (occurrence: US)
  Receive Date: 20120921
  Receipt Date: 20130107
  Transmission Date: 20140127
  Serious: Yes (Death, Hospitalization)
  Sender: FDA-Public Use
  Company Number: US-PFIZER INC-2012231522

PATIENT
  Age: 41 Year
  Sex: Male

DRUGS (4)
  1. XALKORI [Suspect]
     Indication: LUNG NEOPLASM MALIGNANT
     Dosage: 250 MG, 2X/DAY
     Dates: start: 20120322
  2. XALKORI [Suspect]
     Dosage: 250 MG, 2X/DAY
     Dates: start: 20120426
  3. XALKORI [Suspect]
     Dosage: 250 MG, 2X/DAY
     Dates: start: 20120427
  4. XALKORI [Suspect]
     Dosage: 250 MG, 2X/DAY
     Dates: start: 20120125

REACTIONS (6)
  - Disease progression [Fatal]
  - Lung neoplasm malignant [Fatal]
  - Dyspnoea [Unknown]
  - Nausea [Unknown]
  - Vomiting [Unknown]
  - Feeling abnormal [Unknown]
